FAERS Safety Report 23363372 (Version 1)
Quarter: 2024Q1

REPORT INFORMATION
  Report Type: Spontaneous
  Country: FR (occurrence: FR)
  Receive Date: 20240103
  Receipt Date: 20240103
  Transmission Date: 20240410
  Serious: Yes (Other)
  Sender: FDA-Public Use
  Company Number: FR-PFIZER INC-PV202300199661

PATIENT
  Age: 13 Year
  Sex: Male
  Weight: 36.9 kg

DRUGS (4)
  1. OXBRYTA [Suspect]
     Active Substance: VOXELOTOR
     Indication: Haemolytic anaemia
     Dosage: 1500 MG, 1X/DAY
     Route: 048
     Dates: start: 20230907, end: 20231004
  2. HYDREA [Concomitant]
     Active Substance: HYDROXYUREA
     Indication: Sickle cell disease
     Dosage: 1000 MG 5 DAYS/7 DAYS
     Dates: start: 2019
  3. HYDREA [Concomitant]
     Active Substance: HYDROXYUREA
     Dosage: 1500 MG, WEEK-END
     Dates: start: 2019
  4. FOLIC ACID [Concomitant]
     Active Substance: FOLIC ACID
     Indication: Sickle cell disease
     Dosage: 5 MG
     Dates: start: 201011

REACTIONS (4)
  - Cerebral ischaemia [Unknown]
  - Drug ineffective [Unknown]
  - Fatigue [Unknown]
  - Dyspnoea [Unknown]

NARRATIVE: CASE EVENT DATE: 20231004
